FAERS Safety Report 16265488 (Version 1)
Quarter: 2019Q2

REPORT INFORMATION
  Report Type: Spontaneous
  Country: US (occurrence: US)
  Receive Date: 20190502
  Receipt Date: 20190502
  Transmission Date: 20190711
  Serious: No
  Sender: FDA-Public Use
  Company Number: US-SA-2019SA119646

PATIENT
  Age: 73 Year
  Sex: Male

DRUGS (1)
  1. LANTUS SOLOSTAR [Suspect]
     Active Substance: INSULIN GLARGINE
     Indication: TYPE 2 DIABETES MELLITUS
     Dosage: 23 UNITS IN THE MORNING AND 34 UNITS IN THE EVENING
     Route: 065
     Dates: start: 201901

REACTIONS (2)
  - Inappropriate schedule of product administration [Unknown]
  - Incorrect dose administered by device [Unknown]
